FAERS Safety Report 9603853 (Version 2)
Quarter: 2014Q1

REPORT INFORMATION
  Report Type: Spontaneous
  Country: US (occurrence: US)
  Receive Date: 20131008
  Receipt Date: 20140101
  Transmission Date: 20141002
  Serious: Yes (Hospitalization, Other)
  Sender: FDA-Public Use
  Company Number: US-AMGEN-USASP2013069945

PATIENT
  Age: 65 Year
  Sex: Male

DRUGS (2)
  1. ENBREL [Suspect]
     Indication: PSORIATIC ARTHROPATHY
     Dosage: 25 MG, 2 TIMES/WK
     Route: 065
     Dates: start: 20020101
  2. ENBREL [Suspect]
     Indication: PSORIASIS

REACTIONS (20)
  - Large intestine perforation [Recovered/Resolved]
  - Intestinal polypectomy [Recovered/Resolved]
  - Haematochezia [Recovered/Resolved]
  - Joint destruction [Recovered/Resolved]
  - Arthritis [Not Recovered/Not Resolved]
  - Seasonal allergy [Not Recovered/Not Resolved]
  - Chronic obstructive pulmonary disease [Not Recovered/Not Resolved]
  - Constipation [Recovered/Resolved]
  - Dyspepsia [Not Recovered/Not Resolved]
  - Diverticulum [Recovered/Resolved]
  - Joint lock [Not Recovered/Not Resolved]
  - Sleep disorder [Not Recovered/Not Resolved]
  - Spinal pain [Not Recovered/Not Resolved]
  - Musculoskeletal chest pain [Not Recovered/Not Resolved]
  - Arthralgia [Not Recovered/Not Resolved]
  - Musculoskeletal pain [Not Recovered/Not Resolved]
  - Grip strength decreased [Not Recovered/Not Resolved]
  - Sleep apnoea syndrome [Not Recovered/Not Resolved]
  - Claustrophobia [Not Recovered/Not Resolved]
  - Psoriasis [Not Recovered/Not Resolved]
